FAERS Safety Report 24779625 (Version 1)
Quarter: 2024Q4

REPORT INFORMATION
  Report Type: Spontaneous
  Country: US (occurrence: US)
  Receive Date: 20241226
  Receipt Date: 20241226
  Transmission Date: 20250114
  Serious: No
  Sender: SANOFI AVENTIS
  Company Number: US-SA-2024SA380190

PATIENT
  Sex: Female

DRUGS (3)
  1. DUPIXENT [Suspect]
     Active Substance: DUPILUMAB
     Indication: Dermatitis atopic
     Dosage: 300 MG, QOW
     Route: 058
  2. TRAZODONE [Concomitant]
     Active Substance: TRAZODONE HYDROCHLORIDE
     Dosage: LOWERED TO 6 POINT 25 MILLIGRAMS
  3. CARVEDILOL [Concomitant]
     Active Substance: CARVEDILOL
     Dosage: LOWERED TO 6 POINT 25 MILLIGRAMS

REACTIONS (2)
  - Eczema [Unknown]
  - Pruritus [Unknown]
